FAERS Safety Report 9838716 (Version 1)
Quarter: 2013Q4

REPORT INFORMATION
  Report Type: Spontaneous
  Country: US (occurrence: None)
  Receive Date: 20131206
  Receipt Date: 20131206
  Transmission Date: 20140711
  Serious: No
  Sender: FDA-Public Use
  Company Number: 386114

PATIENT
  Age: 60 Year
  Sex: Female

DRUGS (8)
  1. NOVOLOG [Suspect]
     Indication: TYPE 2 DIABETES MELLITUS
     Dosage: 20 UNITS, QD AT NIGHT
     Dates: start: 2009
  2. LANTUS (INSULIN GLARGINE) [Suspect]
     Indication: TYPE 2 DIABETES MELLITUS
     Route: 058
     Dates: start: 2007
  3. BENICAR HCT (HYDROCHLOROTHIAZIDE, OLMESARTAN MEDOXOMIL) (TABLET) (HYDROCHLOROTHIAZIDE, OLMESARTAN MEDOXOMIL) [Concomitant]
  4. ANTI-INFLAMMATORY (DICLOFENAC SODIUM) [Concomitant]
  5. SINGLULAIR (MONTELUKAST SODIUM) [Concomitant]
  6. BUPROPION HCL (BUPROPION HYDROCHLORIDE) [Concomitant]
  7. METFORMIN (METFORMIN) [Concomitant]
  8. FUROSEMIDE (FUROSEMIDE) [Concomitant]

REACTIONS (3)
  - Wrong drug administered [None]
  - Blood glucose increased [None]
  - Blood glucose decreased [None]
